FAERS Safety Report 9267621 (Version 2)
Quarter: 2013Q2

REPORT INFORMATION
  Report Type: Spontaneous
  Country: US (occurrence: US)
  Receive Date: 20130502
  Receipt Date: 20130514
  Transmission Date: 20140414
  Serious: Yes (Other)
  Sender: FDA-Public Use
  Company Number: US-TEVA-402410USA

PATIENT
  Sex: Male

DRUGS (1)
  1. PRAVASTATIN [Suspect]

REACTIONS (1)
  - Coeliac disease [Unknown]
